FAERS Safety Report 9293623 (Version 1)
Quarter: 2013Q2

REPORT INFORMATION
  Report Type: Spontaneous
  Country: US (occurrence: US)
  Receive Date: 20130516
  Receipt Date: 20130516
  Transmission Date: 20140414
  Serious: No
  Sender: FDA-Public Use
  Company Number: US-BANPHARM-20120280

PATIENT
  Age: 78 Year
  Sex: Male
  Weight: 102.1 kg

DRUGS (1)
  1. IBUPROFEN CAPSULES 200 MG [Suspect]
     Dosage: 200-400 MG, QD,
     Route: 048
     Dates: start: 20120914, end: 20120916

REACTIONS (1)
  - Dyspepsia [Unknown]
